FAERS Safety Report 13857508 (Version 5)
Quarter: 2017Q3

REPORT INFORMATION
  Report Type: Report from Study
  Country: US (occurrence: US)
  Receive Date: 20170811
  Receipt Date: 20170913
  Transmission Date: 20171127
  Serious: Yes (Other)
  Sender: FDA-Public Use
  Company Number: US-AMGEN-USASL2017119690

PATIENT
  Age: 79 Year
  Sex: Female

DRUGS (1)
  1. ENBREL [Suspect]
     Active Substance: ETANERCEPT
     Indication: RHEUMATOID ARTHRITIS
     Dosage: 50 MG, QWK
     Route: 065

REACTIONS (10)
  - Abdominal pain [Unknown]
  - Infection [Recovering/Resolving]
  - Adverse drug reaction [Recovering/Resolving]
  - Cough [Unknown]
  - Cystitis [Unknown]
  - Anorectal disorder [Recovering/Resolving]
  - Haematochezia [Recovering/Resolving]
  - Abdominal pain upper [Unknown]
  - Urinary tract infection [Unknown]
  - Gastritis [Recovering/Resolving]

NARRATIVE: CASE EVENT DATE: 20170721
